FAERS Safety Report 9251232 (Version 3)
Quarter: 2013Q4

REPORT INFORMATION
  Report Type: Spontaneous
  Country: US (occurrence: US)
  Receive Date: 20130424
  Receipt Date: 20131015
  Transmission Date: 20140711
  Serious: Yes (Hospitalization, Disabling, Other)
  Sender: FDA-Public Use
  Company Number: US-ASTRAZENECA-2013SE27395

PATIENT
  Age: 34 Year
  Sex: Male

DRUGS (33)
  1. NEXIUM [Suspect]
     Indication: GASTROOESOPHAGEAL REFLUX DISEASE
     Route: 048
     Dates: start: 2003, end: 2007
  2. NEXIUM [Suspect]
     Indication: GASTROOESOPHAGEAL REFLUX DISEASE
     Route: 048
     Dates: start: 20060623
  3. NEXIUM [Suspect]
     Indication: GASTROOESOPHAGEAL REFLUX DISEASE
     Route: 048
     Dates: start: 20101007
  4. NEXIUM [Suspect]
     Indication: GASTROOESOPHAGEAL REFLUX DISEASE
     Route: 048
     Dates: start: 2004, end: 2010
  5. PRILOSEC OTC [Suspect]
     Indication: GASTROOESOPHAGEAL REFLUX DISEASE
     Route: 048
  6. PRILOSEC OTC [Suspect]
     Indication: GASTROOESOPHAGEAL REFLUX DISEASE
     Route: 048
     Dates: start: 2010
  7. LORTAB [Concomitant]
     Indication: PAIN
  8. OXYCODONE [Concomitant]
     Indication: PAIN
  9. NORCO [Concomitant]
     Indication: PAIN
  10. FLEXERIL [Concomitant]
     Indication: MUSCLE RELAXANT THERAPY
  11. AMBIEN [Concomitant]
     Indication: SLEEP DISORDER DUE TO GENERAL MEDICAL CONDITION, INSOMNIA TYPE
  12. AMBIEN [Concomitant]
     Indication: MUSCLE RELAXANT THERAPY
  13. AMBIEN [Concomitant]
     Indication: ANXIETY
  14. CELEXA [Concomitant]
     Indication: DEPRESSION
  15. ENALAPRIL/ HCTZ [Concomitant]
     Dosage: 10-25 MG
     Dates: start: 20070621
  16. SKELAXIN [Concomitant]
     Dates: start: 20080829
  17. LYRICA [Concomitant]
     Route: 048
     Dates: start: 20090502
  18. LORAZEPAM [Concomitant]
     Dates: start: 20090502
  19. AMITRIPTYLINE [Concomitant]
     Indication: SLEEP DISORDER
     Dosage: 1-2 TABLETS AT NIGHT AS NEEDED
  20. ALLEGRA [Concomitant]
     Route: 048
  21. RISPERDAL [Concomitant]
  22. DEPAKOTE [Concomitant]
  23. DEXAMETHASONE [Concomitant]
  24. PRILOSEC [Concomitant]
  25. GEODON [Concomitant]
     Dates: start: 20091210
  26. SIMVASTATIN [Concomitant]
  27. TIZANIDINE [Concomitant]
     Route: 048
     Dates: start: 20110613
  28. FLURAZEPAM [Concomitant]
     Route: 048
     Dates: start: 20110613
  29. DIAZEPAM [Concomitant]
     Route: 048
     Dates: start: 20110817
  30. VENLAFAXINE [Concomitant]
     Dosage: T 2 TS QAM, QPM AND TK ONE T QHS FOR 1 WEEK
     Route: 048
     Dates: start: 20090112
  31. VENLAFAXINE [Concomitant]
     Route: 048
     Dates: start: 20090127
  32. BUPROPION [Concomitant]
     Route: 048
  33. CHLORZOXAZONE [Concomitant]
     Route: 048
     Dates: start: 20061124

REACTIONS (18)
  - Spinal compression fracture [Unknown]
  - Post procedural complication [Unknown]
  - Intervertebral disc disorder [Unknown]
  - Bipolar disorder [Unknown]
  - Laceration [Unknown]
  - Osteoporosis [Unknown]
  - Bone density decreased [Unknown]
  - Road traffic accident [Unknown]
  - Pericarditis [Unknown]
  - Anxiety [Unknown]
  - Sleep disorder [Unknown]
  - Scoliosis [Unknown]
  - Back pain [Unknown]
  - Intervertebral disc protrusion [Unknown]
  - Vertebral foraminal stenosis [Unknown]
  - Osteopenia [Unknown]
  - Kyphosis [Unknown]
  - Depression [Unknown]
